FAERS Safety Report 21457917 (Version 1)
Quarter: 2022Q4

REPORT INFORMATION
  Report Type: Spontaneous
  Country: US (occurrence: US)
  Receive Date: 20221014
  Receipt Date: 20221014
  Transmission Date: 20230113
  Serious: Yes (Other)
  Sender: FDA-Public Use
  Company Number: US-SA-SAC20221014000623

PATIENT
  Sex: Male

DRUGS (6)
  1. ALPROLIX [Suspect]
     Active Substance: EFTRENONACOG ALFA
     Indication: Factor IX deficiency
     Dosage: 3816 IU, QW (3816 UNITS (+/-10%)
     Route: 065
  2. ALPROLIX [Suspect]
     Active Substance: EFTRENONACOG ALFA
     Indication: Factor IX deficiency
     Dosage: 3816 IU, QW (3816 UNITS (+/-10%)
     Route: 065
  3. ALPROLIX [Suspect]
     Active Substance: EFTRENONACOG ALFA
     Dosage: 3180 U, QD 3180 UNITS (+/-10%)  (DAILY AS NEEDED FOR MINOR BLEEDS)
     Route: 042
  4. ALPROLIX [Suspect]
     Active Substance: EFTRENONACOG ALFA
     Dosage: 3180 U, QD 3180 UNITS (+/-10%)  (DAILY AS NEEDED FOR MINOR BLEEDS)
     Route: 042
  5. ALPROLIX [Suspect]
     Active Substance: EFTRENONACOG ALFA
     Dosage: 6360 U, QD (DAILY AS NEEDED FOR MAJOR)
     Route: 042
  6. ALPROLIX [Suspect]
     Active Substance: EFTRENONACOG ALFA
     Dosage: 6360 U, QD (DAILY AS NEEDED FOR MAJOR)
     Route: 042

REACTIONS (1)
  - Haemarthrosis [Recovered/Resolved]
